FAERS Safety Report 5876830-6 (Version None)
Quarter: 2008Q3

REPORT INFORMATION
  Report Type: 
  Country: None (occurrence: None)
  Receive Date: 20080908
  Receipt Date: 20080827
  Transmission Date: 20090109
  Serious: Yes (Other)
  Sender: FDA-Public Use
  Company Number: 238269J08USA

PATIENT
  Age: 23 Year
  Sex: Female

DRUGS (3)
  1. REBIF [Suspect]
     Indication: MULTIPLE SCLEROSIS
     Dosage: 44 MCG, 3 IN 1 WEEKS, SUBCUTANEOUS
     Route: 058
     Dates: start: 20080526, end: 20080701
  2. DAYQUIL (BENADRYL COLD AND FLU) [Concomitant]
  3. AIRBORNE (ALL OTHER THERAPEUTIC PRODUCTS) [Concomitant]

REACTIONS (3)
  - GALLBLADDER DISORDER [None]
  - HEPATIC ENZYME INCREASED [None]
  - VOMITING [None]
